FAERS Safety Report 4542119-0 (Version None)
Quarter: 2004Q4

REPORT INFORMATION
  Report Type: 
  Country: None (occurrence: None)
  Receive Date: 20041227
  Receipt Date: 20041213
  Transmission Date: 20050328
  Serious: Yes (Hospitalization)
  Sender: FDA-Public Use
  Company Number: MK200412-0295-1

PATIENT
  Age: 70 Year
  Sex: Female

DRUGS (3)
  1. ANAFRANIL [Suspect]
     Dosage: 25 MG
     Dates: end: 20031009
  2. DEPAMIDE [Suspect]
     Dates: start: 20030224, end: 20031008
  3. NOCTRAN [Suspect]
     Dates: end: 20031009

REACTIONS (4)
  - BRADYPHRENIA [None]
  - CONFUSIONAL STATE [None]
  - DISORIENTATION [None]
  - FALL [None]
